FAERS Safety Report 8305866 (Version 2)
Quarter: 2013Q1

REPORT INFORMATION
  Report Type: Spontaneous
  Country: US (occurrence: US)
  Receive Date: 20111221
  Receipt Date: 20130325
  Transmission Date: 20140127
  Serious: Yes (Other)
  Sender: FDA-Public Use
  Company Number: US-PURDUE-USA-2011-0079875

PATIENT
  Sex: Female

DRUGS (2)
  1. OXYCONTIN TABLETS [Suspect]
     Indication: BACK PAIN
  2. OXYCONTIN TABLETS [Suspect]
     Indication: NEURALGIA

REACTIONS (2)
  - Spinal fracture [Unknown]
  - Fall [Unknown]
